FAERS Safety Report 4643644-4 (Version None)
Quarter: 2005Q2

REPORT INFORMATION
  Report Type: 
  Country: None (occurrence: None)
  Receive Date: 20050425
  Receipt Date: 20050113
  Transmission Date: 20051028
  Serious: Yes (Other)
  Sender: FDA-Public Use
  Company Number: JP-SOLVAY-00305000113

PATIENT
  Age: 23785 Day
  Sex: Male
  Weight: 50 kg

DRUGS (6)
  1. NAUZELIN [Concomitant]
     Indication: PROPHYLAXIS
     Dosage: DAILY DOSE: 30 MILLIGRAM(S)
     Route: 048
     Dates: start: 20050106, end: 20050111
  2. DEPROMEL 25 [Suspect]
     Indication: DEPRESSION
     Dosage: DAILY DOSE: 25 MILLIGRAM(S)
     Route: 048
     Dates: start: 20050106, end: 20050108
  3. DEPROMEL 25 [Suspect]
     Dosage: DAILY DOSE: 50 MILLIGRAM(S)
     Route: 048
     Dates: start: 20050109, end: 20050111
  4. ASPIRIN [Concomitant]
     Indication: DEPRESSION
     Dosage: DAILY DOSE: 100 MILLIGRAM(S)
     Route: 048
  5. BLOPRESS [Concomitant]
     Indication: HYPERTENSION
     Dosage: DAILY DOSE: 8 MILLIGRAM(S)
     Route: 048
  6. NORVASC [Concomitant]
     Indication: HYPERTENSION
     Dosage: DAILY DOSE: 25 MILLIGRAM(S)
     Route: 048

REACTIONS (3)
  - DELUSION [None]
  - NERVOUSNESS [None]
  - PSYCHOTIC DISORDER [None]
